FAERS Safety Report 18414648 (Version 6)
Quarter: 2022Q1

REPORT INFORMATION
  Report Type: Spontaneous
  Country: US (occurrence: US)
  Receive Date: 20201022
  Receipt Date: 20220107
  Transmission Date: 20220424
  Serious: Yes (Hospitalization, Other)
  Sender: FDA-Public Use
  Company Number: US-SA-2020SA292522

PATIENT
  Age: 19 Year
  Sex: Male

DRUGS (3)
  1. ALPROLIX [Suspect]
     Active Substance: EFTRENONACOG ALFA
     Dosage: 3500 IU
     Route: 042
  2. ALPROLIX [Suspect]
     Active Substance: EFTRENONACOG ALFA
     Dosage: 4000 IU, QW
     Route: 042
  3. BENEFIX [Concomitant]
     Active Substance: COAGULATION FACTOR IX RECOMBINANT HUMAN\ISOPROPYL ALCOHOL
     Dosage: UNK
     Route: 041
     Dates: start: 202110

REACTIONS (6)
  - Limb injury [Recovered/Resolved]
  - Haemarthrosis [Recovered/Resolved]
  - Bladder catheterisation [Unknown]
  - Hospitalisation [Unknown]
  - Road traffic accident [Unknown]
  - Concussion [Unknown]

NARRATIVE: CASE EVENT DATE: 20200820
